FAERS Safety Report 10692929 (Version 3)
Quarter: 2015Q2

REPORT INFORMATION
  Report Type: Spontaneous
  Country: JP (occurrence: JP)
  Receive Date: 20150106
  Receipt Date: 20150421
  Transmission Date: 20150821
  Serious: Yes (Hospitalization)
  Sender: FDA-Public Use
  Company Number: JP-BAYER-2014-176385

PATIENT
  Age: 42 Year
  Sex: Male
  Weight: 69 kg

DRUGS (19)
  1. KOGENATE FS [Suspect]
     Active Substance: ANTIHEMOPHILIC FACTOR, HUMAN RECOMBINANT
     Indication: HAEMOSTASIS
     Dosage: 4000 IU, QOD
     Route: 041
     Dates: start: 20141018, end: 2014
  2. CRAVIT [Concomitant]
     Active Substance: LEVOFLOXACIN
     Indication: INFECTION PROPHYLAXIS
     Dosage: DAILY DOSE 500 MG
     Route: 048
     Dates: start: 20141021, end: 20141028
  3. KOGENATE FS [Suspect]
     Active Substance: ANTIHEMOPHILIC FACTOR, HUMAN RECOMBINANT
     Indication: HAEMOSTASIS
     Dosage: DAILY DOSE 4000 IU
     Route: 042
     Dates: start: 20141018
  4. KOGENATE FS [Suspect]
     Active Substance: ANTIHEMOPHILIC FACTOR, HUMAN RECOMBINANT
     Indication: FACTOR VIII DEFICIENCY
     Dosage: DAILY DOSE 8000 IU
     Route: 042
     Dates: start: 20141024
  5. KOGENATE FS [Suspect]
     Active Substance: ANTIHEMOPHILIC FACTOR, HUMAN RECOMBINANT
     Indication: HAEMOSTASIS
     Dosage: DAILY DOSE 4000 IU
     Route: 042
     Dates: start: 20141120
  6. KOGENATE FS [Suspect]
     Active Substance: ANTIHEMOPHILIC FACTOR, HUMAN RECOMBINANT
     Indication: HAEMOSTASIS
     Dosage: DAILY DOSE 4000 IU
     Route: 042
     Dates: start: 20141105
  7. KOGENATE FS [Suspect]
     Active Substance: ANTIHEMOPHILIC FACTOR, HUMAN RECOMBINANT
     Indication: HAEMOSTASIS
     Dosage: DAILY DOSE 2000 IU
     Route: 042
     Dates: start: 20141117
  8. REBAMIPIDE [Concomitant]
     Active Substance: REBAMIPIDE
     Indication: GASTRITIS PROPHYLAXIS
     Dosage: DAILY DOSE 300 MG
     Route: 048
  9. KOGENATE FS [Suspect]
     Active Substance: ANTIHEMOPHILIC FACTOR, HUMAN RECOMBINANT
     Indication: HAEMOSTASIS
     Dosage: DAILY DOSE 10000 IU
     Route: 042
     Dates: start: 20141027
  10. KOGENATE FS [Suspect]
     Active Substance: ANTIHEMOPHILIC FACTOR, HUMAN RECOMBINANT
     Indication: HAEMOSTASIS
     Dosage: DAILY DOSE 6000 IU
     Route: 042
     Dates: start: 20141103
  11. KOGENATE FS [Suspect]
     Active Substance: ANTIHEMOPHILIC FACTOR, HUMAN RECOMBINANT
     Indication: HAEMOSTASIS
     Dosage: DAILY DOSE 4000 IU
     Route: 042
     Dates: start: 20141116, end: 20141116
  12. KOGENATE FS [Suspect]
     Active Substance: ANTIHEMOPHILIC FACTOR, HUMAN RECOMBINANT
     Indication: HAEMOSTASIS
     Dosage: DAILY DOSE 6000
     Route: 041
     Dates: start: 2014, end: 201501
  13. KOGENATE FS [Suspect]
     Active Substance: ANTIHEMOPHILIC FACTOR, HUMAN RECOMBINANT
     Indication: IMMUNE TOLERANCE INDUCTION
     Dosage: UNK
     Route: 042
     Dates: start: 20141023
  14. KOGENATE FS [Suspect]
     Active Substance: ANTIHEMOPHILIC FACTOR, HUMAN RECOMBINANT
     Indication: HAEMOSTASIS
     Dosage: UNK
     Route: 042
     Dates: start: 20141208, end: 20141219
  15. KOGENATE FS [Suspect]
     Active Substance: ANTIHEMOPHILIC FACTOR, HUMAN RECOMBINANT
     Indication: HAEMOSTASIS
     Dosage: UNK
     Route: 042
     Dates: start: 20141020
  16. CELECOXIB. [Concomitant]
     Active Substance: CELECOXIB
     Indication: PAIN
     Dosage: DAILY DOSE 400 MG
     Route: 048
  17. KOGENATE FS [Suspect]
     Active Substance: ANTIHEMOPHILIC FACTOR, HUMAN RECOMBINANT
     Indication: HAEMOSTASIS
     Dosage: DAILY DOSE 2000 IU
     Route: 042
     Dates: start: 20141108, end: 20141114
  18. KOGENATE FS [Suspect]
     Active Substance: ANTIHEMOPHILIC FACTOR, HUMAN RECOMBINANT
     Indication: HAEMOSTASIS
     Dosage: DAILY DOSE 6000 IU
     Route: 042
     Dates: start: 20141208, end: 20141219
  19. KOGENATE FS [Suspect]
     Active Substance: ANTIHEMOPHILIC FACTOR, HUMAN RECOMBINANT
     Indication: HAEMOSTASIS
     Dosage: 4000 IU, TIW
     Route: 041
     Dates: start: 201501

REACTIONS (4)
  - Rash [Not Recovered/Not Resolved]
  - Incision site haemorrhage [None]
  - Activated partial thromboplastin time prolonged [None]
  - Factor VIII inhibition [Not Recovered/Not Resolved]

NARRATIVE: CASE EVENT DATE: 20141023
